FAERS Safety Report 7353477-6 (Version None)
Quarter: 2011Q1

REPORT INFORMATION
  Report Type: 
  Country: None (occurrence: None)
  Receive Date: 20110315
  Receipt Date: 20110308
  Transmission Date: 20110831
  Serious: Yes (Other)
  Sender: FDA-Public Use
  Company Number: FR-PFIZER INC-2011055924

PATIENT
  Age: 90 Year
  Sex: Male

DRUGS (10)
  1. SPASFON [Concomitant]
     Dosage: 1 UNIT 3 TIMES A DAY
     Route: 048
     Dates: start: 20110112
  2. ATARAX [Suspect]
     Dosage: 25 MG, UNK
     Route: 048
     Dates: start: 20101231, end: 20110111
  3. COLCHICINE [Suspect]
     Dosage: 1 MG, UNK
     Route: 048
     Dates: start: 20110109, end: 20110124
  4. CALCIPARINE [Suspect]
     Dosage: 5000 IU, 2X/DAY
     Route: 058
     Dates: start: 20101231, end: 20110110
  5. KARDEGIC [Concomitant]
     Dosage: 160 MG, UNK
     Route: 048
     Dates: start: 20101231
  6. AUGMENTIN '125' [Suspect]
     Dosage: 1 DF, 3X/DAY
     Route: 048
     Dates: start: 20110107, end: 20110112
  7. AMIODARONE [Concomitant]
     Dosage: 100 MG, UNK
     Route: 048
  8. SERESTA [Concomitant]
     Dosage: UNK
     Route: 048
     Dates: start: 20110111
  9. SELOKEN [Suspect]
     Dosage: 25 MG, 2X/DAY
     Route: 048
     Dates: end: 20110118
  10. XATRAL [Concomitant]
     Dosage: 10 MG, UNK
     Route: 048
     Dates: start: 20110111

REACTIONS (1)
  - CYTOLYTIC HEPATITIS [None]
